FAERS Safety Report 6800810-7 (Version None)
Quarter: 2010Q2

REPORT INFORMATION
  Report Type: 
  Country: None (occurrence: None)
  Receive Date: 20100629
  Receipt Date: 20100617
  Transmission Date: 20101027
  Serious: Yes (Hospitalization, Disabling, Other)
  Sender: FDA-Public Use
  Company Number: ES-JNJFOC-20100605366

PATIENT
  Age: 36 Year
  Sex: Male

DRUGS (2)
  1. REMICADE [Suspect]
     Indication: ACUTE GENERALISED EXANTHEMATOUS PUSTULOSIS
     Route: 042
     Dates: start: 20090331, end: 20090707
  2. REMICADE [Suspect]
     Indication: PSORIASIS
     Route: 042
     Dates: start: 20090331, end: 20090707

REACTIONS (2)
  - LIVEDO RETICULARIS [None]
  - RAYNAUD'S PHENOMENON [None]
